FAERS Safety Report 5227399-0 (Version None)
Quarter: 2007Q1

REPORT INFORMATION
  Report Type: 
  Country: None (occurrence: None)
  Receive Date: 20070202
  Receipt Date: 20070124
  Transmission Date: 20070707
  Serious: Yes (Hospitalization)
  Sender: FDA-Public Use
  Company Number: JP-ELI_LILLY_AND_COMPANY-JP200611003297

PATIENT
  Age: 64 Year
  Sex: Male

DRUGS (5)
  1. GEMZAR [Suspect]
     Indication: PANCREATIC CARCINOMA STAGE IV
     Dosage: 1400 MG, OTHER
     Route: 042
     Dates: start: 20060914, end: 20061027
  2. LOXONIN [Concomitant]
     Indication: PAIN
     Dosage: 60 MG, 2/D
     Route: 048
     Dates: start: 20060825
  3. ALTAT [Concomitant]
     Indication: STOMACH DISCOMFORT
     Dosage: 75 MG, 2/D
     Route: 048
     Dates: start: 20060825
  4. RIZE [Concomitant]
     Indication: GENERALISED ANXIETY DISORDER
     Dosage: 5 MG, 2/D
     Route: 048
  5. CONSTAN [Concomitant]
     Indication: GENERALISED ANXIETY DISORDER
     Dosage: 0.4 MG, DAILY (1/D)
     Route: 048

REACTIONS (3)
  - CONSTIPATION [None]
  - INSOMNIA [None]
  - PNEUMOCYSTIS JIROVECI PNEUMONIA [None]
